FAERS Safety Report 4697320-2 (Version None)
Quarter: 2005Q2

REPORT INFORMATION
  Report Type: 
  Country: None (occurrence: None)
  Receive Date: 20050620
  Receipt Date: 20050609
  Transmission Date: 20051028
  Serious: Yes (Death)
  Sender: FDA-Public Use
  Company Number: 2005-06-0656

PATIENT
  Age: 20 Year
  Sex: Female

DRUGS (1)
  1. CELESTONE SOLUSPAN [Suspect]
     Indication: IDIOPATHIC URTICARIA
     Dosage: 1 AMPULE INTRAMUSCULAR
     Route: 030
     Dates: start: 20050531, end: 20050531

REACTIONS (1)
  - DEATH [None]
